FAERS Safety Report 5320525-4 (Version None)
Quarter: 2007Q2

REPORT INFORMATION
  Report Type: 
  Country: None (occurrence: None)
  Receive Date: 20070509
  Receipt Date: 20070427
  Transmission Date: 20071010
  Serious: Yes (Other)
  Sender: FDA-Public Use
  Company Number: CA-PFIZER INC-2007035681

PATIENT
  Age: 85 Year
  Sex: Female

DRUGS (2)
  1. LYRICA [Suspect]
     Indication: NEURALGIA
     Route: 048
  2. FENTANYL [Suspect]

REACTIONS (2)
  - HEART RATE DECREASED [None]
  - RESPIRATORY RATE DECREASED [None]
